FAERS Safety Report 13746911 (Version 2)
Quarter: 2017Q3

REPORT INFORMATION
  Report Type: Spontaneous
  Country: FR (occurrence: FR)
  Receive Date: 20170712
  Receipt Date: 20170717
  Transmission Date: 20171127
  Serious: Yes (Other)
  Sender: FDA-Public Use
  Company Number: PHHY2017FR102746

PATIENT
  Age: 55 Year
  Sex: Female

DRUGS (4)
  1. CICLOSPORIN [Suspect]
     Active Substance: CYCLOSPORINE
     Indication: RENAL TRANSPLANT
     Route: 042
  2. CICLOSPORIN [Suspect]
     Active Substance: CYCLOSPORINE
     Indication: FOCAL SEGMENTAL GLOMERULOSCLEROSIS
  3. RITUXIMAB. [Concomitant]
     Active Substance: RITUXIMAB
     Dosage: 2[1-3] DOSES
     Route: 041
  4. RITUXIMAB. [Concomitant]
     Active Substance: RITUXIMAB
     Indication: FOCAL SEGMENTAL GLOMERULOSCLEROSIS
     Dosage: 375 MG/M2, UNK
     Route: 065

REACTIONS (2)
  - Drug resistance [Unknown]
  - Focal segmental glomerulosclerosis [Unknown]
